FAERS Safety Report 20584205 (Version 1)
Quarter: 2022Q1

REPORT INFORMATION
  Report Type: Report from Study
  Country: US (occurrence: US)
  Receive Date: 20220311
  Receipt Date: 20220311
  Transmission Date: 20220423
  Serious: Yes (Other)
  Sender: FDA-Public Use
  Company Number: US-MYLANLABS-2022M1019188

PATIENT
  Age: 76 Year
  Sex: Male

DRUGS (6)
  1. METHOTREXATE [Suspect]
     Active Substance: METHOTREXATE
     Indication: Acute febrile neutrophilic dermatosis
     Dosage: UNK
     Route: 065
  2. PREDNISONE [Suspect]
     Active Substance: PREDNISONE
     Indication: Acute febrile neutrophilic dermatosis
     Dosage: UNK
     Route: 065
  3. FLUOCINONIDE [Suspect]
     Active Substance: FLUOCINONIDE
     Indication: Acute febrile neutrophilic dermatosis
     Dosage: UNK
     Route: 065
  4. DAPSONE [Suspect]
     Active Substance: DAPSONE
     Indication: Acute febrile neutrophilic dermatosis
     Dosage: 100 MILLIGRAM, QD
     Route: 048
  5. TACROLIMUS [Concomitant]
     Active Substance: TACROLIMUS
     Indication: Acute febrile neutrophilic dermatosis
     Dosage: UNK
     Route: 065
  6. DESONIDE [Concomitant]
     Active Substance: DESONIDE
     Indication: Acute febrile neutrophilic dermatosis
     Dosage: UNK
     Route: 065

REACTIONS (3)
  - Pancytopenia [Unknown]
  - Drug ineffective [Unknown]
  - Off label use [Unknown]
